FAERS Safety Report 5370428-4 (Version None)
Quarter: 2007Q2

REPORT INFORMATION
  Report Type: 
  Country: None (occurrence: None)
  Receive Date: 20070625
  Receipt Date: 20070625
  Transmission Date: 20071010
  Serious: Yes (Other)
  Sender: FDA-Public Use
  Company Number: None

PATIENT
  Sex: Female
  Weight: 72.5755 kg

DRUGS (2)
  1. AVELOX [Suspect]
     Indication: SINUSITIS
     Dosage: 400 MG 1 X DAY ORAL
     Route: 048
     Dates: start: 20070306
  2. AVELOX [Suspect]
     Indication: SINUSITIS
     Dosage: 400 MG 1 X DAY ORAL
     Route: 048
     Dates: start: 20070601

REACTIONS (15)
  - ARTHRALGIA [None]
  - ASTHENIA [None]
  - BLOOD PRESSURE INCREASED [None]
  - DIZZINESS [None]
  - FEELING JITTERY [None]
  - HEART RATE INCREASED [None]
  - HYPOAESTHESIA [None]
  - JOINT SWELLING [None]
  - MALAISE [None]
  - NAUSEA [None]
  - NERVOUSNESS [None]
  - PAIN [None]
  - PAIN IN EXTREMITY [None]
  - PARAESTHESIA [None]
  - TENDON RUPTURE [None]
